FAERS Safety Report 7075084-5 (Version None)
Quarter: 2010Q4

REPORT INFORMATION
  Report Type: 
  Country: None (occurrence: None)
  Receive Date: 20101029
  Receipt Date: 20100310
  Transmission Date: 20110411
  Serious: No
  Sender: FDA-Public Use
  Company Number: US-WYE-H14061410

PATIENT
  Age: 23 Year
  Sex: Female
  Weight: 59.02 kg

DRUGS (3)
  1. ALAVERT D-12 [Suspect]
     Indication: NASAL CONGESTION
     Dosage: 1 TABLET X 1
     Route: 048
     Dates: start: 20100308, end: 20100308
  2. ALAVERT D-12 [Interacting]
     Indication: SNEEZING
  3. ETHANOL [Interacting]
     Dosage: 3 MARGARITAS
     Route: 048
     Dates: start: 20100308, end: 20100308

REACTIONS (4)
  - ALCOHOL INTERACTION [None]
  - LOSS OF CONSCIOUSNESS [None]
  - NAUSEA [None]
  - VOMITING [None]
